FAERS Safety Report 8568685 (Version 6)
Quarter: 2013Q2

REPORT INFORMATION
  Report Type: Spontaneous
  Country: US (occurrence: US)
  Receive Date: 20120518
  Receipt Date: 20130517
  Transmission Date: 20140414
  Serious: Yes (Hospitalization)
  Sender: FDA-Public Use
  Company Number: US-B.I. PHARMACEUTICALS,INC./RIDGEFIELD-2012-BP-10714BP

PATIENT
  Age: 69 Year
  Sex: Male
  Weight: 83.91 kg

DRUGS (14)
  1. PRADAXA [Suspect]
     Indication: ATRIAL FIBRILLATION
     Dosage: 150 MG
     Route: 048
     Dates: start: 201111, end: 20111201
  2. ASPIRIN [Concomitant]
     Dosage: 325 MG
     Route: 048
  3. DILTIAZEM HCL [Concomitant]
     Route: 048
  4. COREG [Concomitant]
     Dosage: 50 MG
     Route: 048
  5. LASIX [Concomitant]
     Dosage: 40 MG
     Route: 048
  6. PROTONIX [Concomitant]
     Dosage: 40 MG
     Route: 048
  7. ZEMPLAR [Concomitant]
     Dosage: 0.4286 MCG
     Route: 048
  8. AMLODIPINE [Concomitant]
     Dosage: 10 MG
     Route: 048
  9. VITAMIN D2 [Concomitant]
     Dosage: 1666.6667 U
     Route: 048
  10. ISOSORBIDE DINITRATE [Concomitant]
     Dosage: 30 MG
     Route: 048
  11. ISOSORBIDE MONONITRATE [Concomitant]
     Dosage: 30 MG
     Route: 048
  12. HYDRALAZINE [Concomitant]
     Dosage: 300 MG
     Route: 048
  13. SIMVASTATIN [Concomitant]
     Dosage: 20 MG
     Route: 048
  14. TERAZOSIN [Concomitant]
     Dosage: 5 MG
     Route: 048

REACTIONS (5)
  - Acute respiratory failure [Unknown]
  - Renal failure [Unknown]
  - Gastrointestinal haemorrhage [Unknown]
  - Haemorrhagic anaemia [Unknown]
  - Coagulopathy [Unknown]
